FAERS Safety Report 6464494-2 (Version None)
Quarter: 2009Q4

REPORT INFORMATION
  Report Type: 
  Country: None (occurrence: None)
  Receive Date: 20091118
  Receipt Date: 20090602
  Transmission Date: 20100525
  Serious: Yes (Hospitalization)
  Sender: FDA-Public Use
  Company Number: 2009BI001262

PATIENT
  Age: 54 Year
  Sex: Male

DRUGS (5)
  1. TYSABRI [Suspect]
     Indication: MULTIPLE SCLEROSIS
     Dosage: 300 MG;QM;IV
     Route: 042
     Dates: start: 20080513
  2. TEGRETOL [Concomitant]
  3. LAMICTAL [Concomitant]
  4. CLONAZEPAM [Concomitant]
  5. NEURONTIN [Concomitant]

REACTIONS (11)
  - DYSTONIA [None]
  - FALL [None]
  - FATIGUE [None]
  - HERPES ZOSTER [None]
  - HYPERAESTHESIA [None]
  - INFLUENZA [None]
  - NASOPHARYNGITIS [None]
  - NEPHROLITHIASIS [None]
  - RESPIRATORY TRACT INFECTION [None]
  - STAPHYLOCOCCAL SKIN INFECTION [None]
  - TRIGEMINAL NEURALGIA [None]
